FAERS Safety Report 23815405 (Version 1)
Quarter: 2024Q2

REPORT INFORMATION
  Report Type: Spontaneous
  Country: SE (occurrence: SE)
  Receive Date: 20240503
  Receipt Date: 20240503
  Transmission Date: 20240715
  Serious: Yes (Other)
  Sender: FDA-Public Use
  Company Number: SE-NALPROPION PHARMACEUTICALS INC.-SE-2024CUR002012

PATIENT
  Age: 60 Year
  Sex: Female
  Weight: 95 kg

DRUGS (8)
  1. BUPROPION HYDROCHLORIDE\NALTREXONE HYDROCHLORIDE [Suspect]
     Active Substance: BUPROPION HYDROCHLORIDE\NALTREXONE HYDROCHLORIDE
     Indication: Obesity
     Dosage: STRENGTH 8/90 MG, UNKNOWN DOSE AND FREQUENCY
     Route: 048
     Dates: start: 20240319, end: 2024
  2. BUPROPION HYDROCHLORIDE\NALTREXONE HYDROCHLORIDE [Suspect]
     Active Substance: BUPROPION HYDROCHLORIDE\NALTREXONE HYDROCHLORIDE
     Dosage: STRENGTH 8/90 MG, 2+0+2 INCREASE ACCORDING TO FASS
     Route: 048
     Dates: start: 2024, end: 20240419
  3. OMEPRAZOLE [Concomitant]
     Active Substance: OMEPRAZOLE
     Indication: Product used for unknown indication
     Dosage: 2+0+0
     Route: 048
     Dates: start: 20201020
  4. PROPIOMAZINE [Concomitant]
     Active Substance: PROPIOMAZINE
     Indication: Product used for unknown indication
     Dosage: 1 TABLET IN THE EVENING WHEN NEEDED
     Route: 048
     Dates: start: 20070115
  5. METOPROLOL SUCCINATE [Concomitant]
     Active Substance: METOPROLOL SUCCINATE
     Indication: Product used for unknown indication
     Dosage: 1+0+1
     Route: 048
     Dates: start: 20090119
  6. BETAMETHASONE [Concomitant]
     Active Substance: BETAMETHASONE\BETAMETHASONE DIPROPIONATE
     Indication: Product used for unknown indication
     Dosage: WHEN NEEDED. EXTERNAL AGAINST ECZEMA ACC TO SCHEME. (1 AS NECESSARY)
     Route: 061
     Dates: start: 20220218
  7. PRADAXA [Concomitant]
     Active Substance: DABIGATRAN ETEXILATE MESYLATE
     Indication: Product used for unknown indication
     Dosage: 1+0+1
     Route: 048
     Dates: start: 20160222
  8. Paracetamol krka [Concomitant]
     Indication: Product used for unknown indication
     Dosage: 1 TABLET WHEN NEEDED 2-3 TIMES PER DAY (1 AS NECESSARY)
     Route: 048

REACTIONS (6)
  - Discomfort [Unknown]
  - Hot flush [Recovered/Resolved]
  - Blood pressure increased [Recovered/Resolved]
  - Hyperhidrosis [Recovered/Resolved]
  - Fatigue [Unknown]
  - Heart rate increased [Recovered/Resolved]

NARRATIVE: CASE EVENT DATE: 20240410
